FAERS Safety Report 7122523-7 (Version None)
Quarter: 2010Q4

REPORT INFORMATION
  Report Type: 
  Country: None (occurrence: None)
  Receive Date: 20101122
  Receipt Date: 20101122
  Transmission Date: 20110411
  Serious: Yes (Other)
  Sender: FDA-Public Use
  Company Number: None

PATIENT
  Age: 54 Year
  Sex: Female
  Weight: 61.2356 kg

DRUGS (2)
  1. NUCYNTA [Suspect]
     Indication: BACK PAIN
     Dosage: .05 TO 1 TABLET 3 3 TIMES PER DAY PO 1 TABLET 1 DAY
     Route: 048
     Dates: start: 20100811, end: 20100811
  2. NUCYNTA [Suspect]
     Indication: BACK PAIN
     Dosage: .05 TO 1 TABLET 3 3 TIMES PER DAY PO 1 TABLET 1 DAY
     Route: 048
     Dates: start: 20101118, end: 20101118

REACTIONS (3)
  - ABDOMINAL DISCOMFORT [None]
  - DIPLOPIA [None]
  - HEADACHE [None]
